FAERS Safety Report 6687606-4 (Version None)
Quarter: 2010Q2

REPORT INFORMATION
  Report Type: 
  Country: None (occurrence: None)
  Receive Date: 20100416
  Receipt Date: 20100416
  Transmission Date: 20101027
  Serious: Yes (Other)
  Sender: FDA-Public Use
  Company Number: None

PATIENT
  Age: 43 Year
  Sex: Female
  Weight: 65.7716 kg

DRUGS (2)
  1. CYMBALTA [Suspect]
     Indication: DEPRESSION
     Dosage: 30 MG DAILY PO
     Route: 048
     Dates: start: 20090811, end: 20090909
  2. CYMBALTA [Suspect]
     Dosage: 20MG - 30MG 50MG DAILY PO
     Route: 048
     Dates: start: 20090909, end: 20091217

REACTIONS (3)
  - ARTHRALGIA [None]
  - ARTHROPATHY [None]
  - MOBILITY DECREASED [None]
